FAERS Safety Report 8831973 (Version 2)
Quarter: 2012Q4

REPORT INFORMATION
  Report Type: Report from Study
  Country: JP (occurrence: JP)
  Receive Date: 20121009
  Receipt Date: 20121109
  Transmission Date: 20130627
  Serious: Yes (Other)
  Sender: FDA-Public Use
  Company Number: JP-VERTEX PHARMACEUTICAL INC.-2012-022410

PATIENT
  Age: 54 Year
  Sex: Female

DRUGS (10)
  1. VX-950 [Suspect]
     Indication: CHRONIC HEPATITIS C
     Dosage: 1500 mg, qd
     Route: 048
     Dates: start: 20120814, end: 20120906
  2. VX-950 [Suspect]
     Dosage: 1000 mg, qd
     Route: 048
     Dates: start: 20120907, end: 20121004
  3. RIBAVIRIN [Suspect]
     Indication: CHRONIC HEPATITIS C
     Dosage: 600 mg, qd
     Route: 048
     Dates: start: 20120814, end: 20121008
  4. RIBAVIRIN [Suspect]
     Dosage: 400 mg, qd
     Route: 048
     Dates: start: 20121009
  5. PEGINTERFERON ALFA-2B [Suspect]
     Indication: CHRONIC HEPATITIS C
     Dosage: 1.5 ?g/kg, qw
     Route: 058
     Dates: start: 20120814, end: 20120820
  6. PEGINTERFERON ALFA-2B [Suspect]
     Dosage: 60 ?g, qw
     Route: 058
     Dates: start: 20120821, end: 20120827
  7. PEGINTERFERON ALFA-2B [Suspect]
     Dosage: 50 ?g, qw
     Route: 058
     Dates: start: 20120828, end: 20120909
  8. PEGINTERFERON ALFA-2B [Suspect]
     Dosage: 40 ?g, qw
     Route: 058
     Dates: start: 20120910
  9. ALLEGRA [Concomitant]
     Dosage: 120 mg, qd
     Route: 048
     Dates: start: 20120813
  10. CRAVIT [Concomitant]
     Dosage: 500 mg, qd
     Route: 048
     Dates: start: 20120906, end: 20120908

REACTIONS (5)
  - Neutrophil count decreased [Recovered/Resolved]
  - Platelet count decreased [None]
  - Cystitis [None]
  - Rash [None]
  - Haemoglobin decreased [None]
